FAERS Safety Report 13266299 (Version 1)
Quarter: 2017Q1

REPORT INFORMATION
  Report Type: Spontaneous
  Country: US (occurrence: US)
  Receive Date: 20170223
  Receipt Date: 20170223
  Transmission Date: 20170428
  Serious: No
  Sender: FDA-Public Use
  Company Number: US-ELI_LILLY_AND_COMPANY-US201702008696

PATIENT
  Age: 32 Year
  Sex: Female

DRUGS (2)
  1. TRULICITY [Suspect]
     Active Substance: DULAGLUTIDE
     Indication: HYPERGLYCAEMIA
     Dosage: 1.5 MG, UNKNOWN
     Route: 065
     Dates: start: 201701
  2. METOPROLOL. [Concomitant]
     Active Substance: METOPROLOL

REACTIONS (6)
  - Hallucination [Unknown]
  - Mental status changes [Unknown]
  - Inflammation [Unknown]
  - Vomiting [Unknown]
  - Mental impairment [Unknown]
  - Swelling face [Unknown]

NARRATIVE: CASE EVENT DATE: 201701
